FAERS Safety Report 7921471-X (Version None)
Quarter: 2011Q4

REPORT INFORMATION
  Report Type: 
  Country: None (occurrence: None)
  Receive Date: 20111117
  Receipt Date: 20111116
  Transmission Date: 20120403
  Serious: Yes (Hospitalization)
  Sender: FDA-Public Use
  Company Number: IT-SANOFI-AVENTIS-2011SA075353

PATIENT
  Age: 71 Year
  Sex: Male

DRUGS (5)
  1. ZOLPIDEM TARTRATE [Suspect]
     Indication: INSOMNIA
     Route: 048
     Dates: start: 20110201, end: 20111024
  2. PRAMIPEXOLE DIHYDROCHLORIDE [Suspect]
     Indication: PARKINSON'S DISEASE
     Route: 048
     Dates: start: 20111018, end: 20111024
  3. CARBIDOPA + LEVODOPA [Suspect]
     Indication: PARKINSON'S DISEASE
     Route: 048
     Dates: start: 20110201, end: 20111024
  4. ANTIHYPERTENSIVES [Concomitant]
  5. CITALOPRAM HYDROBROMIDE [Suspect]
     Indication: ANXIETY
     Route: 048
     Dates: start: 20110201, end: 20111024

REACTIONS (4)
  - CONFUSIONAL STATE [None]
  - BLADDER SPHINCTER ATONY [None]
  - ANAL SPHINCTER ATONY [None]
  - HALLUCINATION [None]
